FAERS Safety Report 6679109-8 (Version None)
Quarter: 2010Q2

REPORT INFORMATION
  Report Type: 
  Country: None (occurrence: None)
  Receive Date: 20100409
  Receipt Date: 20100329
  Transmission Date: 20101027
  Serious: Yes (Death, Hospitalization, Other)
  Sender: FDA-Public Use
  Company Number: 2009US003389

PATIENT
  Age: 15 Year
  Sex: Male
  Weight: 40 kg

DRUGS (28)
  1. AMBISOME [Suspect]
     Indication: CANDIDIASIS
     Dosage: 200 MG, UID/QD, IV DRIP
     Route: 041
     Dates: start: 20090624, end: 20090630
  2. PROGRAF [Suspect]
     Indication: GRAFT VERSUS HOST DISEASE
     Dosage: 1.1 MG, UID/QD, IV DRIP
     Route: 041
     Dates: start: 20090615, end: 20091201
  3. FUNGUARD (MICAFUNGIN) INJECTION [Suspect]
     Indication: FUNGAL INFECTION
     Dosage: 150 MG, UID/QD, IV DRIP
     Route: 041
     Dates: start: 20090627, end: 20091203
  4. ZOSYN [Suspect]
     Indication: DRUG USE FOR UNKNOWN INDICATION
     Dosage: 3 DF, UID/QD, IV NOS
     Dates: start: 20090629, end: 20090710
  5. MAXIPIME [Suspect]
     Indication: DRUG USE FOR UNKNOWN INDICATION
     Dosage: 3 DF, UID/QD, IV NOS
     Dates: start: 20090612, end: 20090628
  6. TARGOCID [Suspect]
     Indication: DRUG USE FOR UNKNOWN INDICATION
     Dosage: 400 MG, UID/QD, IV DRIP
     Route: 041
     Dates: start: 20090612, end: 20090710
  7. CIPROFLOXACIN HCL [Suspect]
     Indication: DRUG USE FOR UNKNOWN INDICATION
     Dosage: 400 MG, UID/QD, IV DRIP
     Route: 041
     Dates: start: 20090624, end: 20090710
  8. METHOTREXATE [Suspect]
     Indication: DRUG USE FOR UNKNOWN INDICATION
     Dosage: 15 MG, UID/QD, IV NOS
     Dates: start: 20090627, end: 20090627
  9. LEUCOVORIN CALCIUM [Suspect]
     Indication: DRUG USE FOR UNKNOWN INDICATION
     Dosage: 30 MG, UID/QD
     Dates: start: 20090627, end: 20090627
  10. COTRIM [Concomitant]
  11. PENTAZOCINE LACTATE [Concomitant]
  12. GANCICLOVIR [Concomitant]
  13. SOLDEM 1 (GLUCOSE, SODIUM CHLORIDE, SODIUM LACTATE) [Concomitant]
  14. NOVO HEPARIN (HEPARIN) [Concomitant]
  15. VFEND [Concomitant]
  16. MEROPEN (MEROPENEM TRIHYDRATE) [Concomitant]
  17. PLATELETS [Concomitant]
  18. RED BLOOD CELLS [Concomitant]
  19. NEO MINOPHAGEN C (AMINOACETIC ACID, CYSTEINE HYDROCLORIDE, GLYCYRRHIZI [Concomitant]
  20. VICCLOX MEIJI (ACICLOVIR) [Concomitant]
  21. APROVAN KOBAYASHI (NICARDIPINE HYDROCHLORIDE) [Concomitant]
  22. NEUPOGEN [Concomitant]
  23. VENOGLOBULIN (IMMUNOGLOBULIN) [Concomitant]
  24. ITRACONAZOLE [Concomitant]
  25. FLUDARABINE PHOSPHATE [Concomitant]
  26. MELPHALAN HYDROCHLORIDE [Concomitant]
  27. ANTI-THYMOCYTE GLOBULIN NOS [Concomitant]
  28. .........................` [Concomitant]
     Dosage: 125 MG, UID/QD, IV NOS
     Dates: start: 20090814, end: 20090819

REACTIONS (8)
  - DRUG INTERACTION [None]
  - FUNGAL INFECTION [None]
  - HEPATIC FAILURE [None]
  - LUNG NEOPLASM [None]
  - MULTI-ORGAN FAILURE [None]
  - PANCREATITIS ACUTE [None]
  - PULMONARY OEDEMA [None]
  - RENAL FAILURE [None]
